FAERS Safety Report 8218514-5 (Version None)
Quarter: 2012Q1

REPORT INFORMATION
  Report Type: 
  Country: None (occurrence: None)
  Receive Date: 20120306
  Receipt Date: 20110331
  Transmission Date: 20120608
  Serious: Yes (Other)
  Sender: FDA-Public Use
  Company Number: US-005620

PATIENT
  Sex: Female

DRUGS (14)
  1. LOPRESSOR [Concomitant]
  2. BENADRYL [Concomitant]
  3. CLARITIN [Concomitant]
  4. LOVENOX [Concomitant]
  5. LOVAZA [Concomitant]
  6. SYNTHROID (LEVOTHRYROXINE SODIUM) [Concomitant]
  7. VITAMIN D [Concomitant]
  8. CILOSTAZOL [Concomitant]
  9. ISOVUE-250 [Suspect]
     Indication: PERIPHERAL VASCULAR DISORDER
     Dosage: 16ML INTRA-ARTERIAL
     Route: 013
     Dates: start: 20101201, end: 20101201
  10. ISOVUE-250 [Suspect]
     Indication: ANGIOGRAM ABNORMAL
     Dosage: 16ML INTRA-ARTERIAL
     Route: 013
     Dates: start: 20101201, end: 20101201
  11. HYDROCHLOROTHIAZIDE [Concomitant]
  12. ATACAND [Concomitant]
  13. ZOCOR [Concomitant]
  14. CALCIUM CARBONATE [Concomitant]

REACTIONS (1)
  - ANAPHYLACTIC REACTION [None]
